FAERS Safety Report 8355848-8 (Version None)
Quarter: 2012Q2

REPORT INFORMATION
  Report Type: 
  Country: None (occurrence: None)
  Receive Date: 20120514
  Receipt Date: 20120507
  Transmission Date: 20120825
  Serious: Yes (Other)
  Sender: FDA-Public Use
  Company Number: US-BRISTOL-MYERS SQUIBB COMPANY-16574741

PATIENT
  Age: 74 Year
  Sex: Female

DRUGS (1)
  1. ABILIFY [Suspect]
     Indication: DEPRESSION
     Dosage: 1-2 YRS

REACTIONS (4)
  - SWELLING [None]
  - FALL [None]
  - TARDIVE DYSKINESIA [None]
  - RIB FRACTURE [None]
